FAERS Safety Report 22060796 (Version 1)
Quarter: 2023Q1

REPORT INFORMATION
  Report Type: Spontaneous
  Country: CH (occurrence: CH)
  Receive Date: 20230303
  Receipt Date: 20230303
  Transmission Date: 20230417
  Serious: Yes (Other)
  Sender: FDA-Public Use
  Company Number: CH-VERTEX PHARMACEUTICALS-2022-017835

PATIENT
  Age: 32 Year
  Sex: Male
  Weight: 61 kg

DRUGS (4)
  1. KALYDECO [Suspect]
     Active Substance: IVACAFTOR
     Indication: Cystic fibrosis
     Dosage: 75MG (EXACT REGIMEN OF DOSAGE UNKNOWN)
     Route: 048
     Dates: start: 20210607, end: 20210620
  2. KALYDECO [Suspect]
     Active Substance: IVACAFTOR
     Dosage: UNK
     Route: 048
     Dates: start: 20210729, end: 202108
  3. COLISTIN [Concomitant]
     Active Substance: COLISTIN
  4. TOBRAMYCIN [Concomitant]
     Active Substance: TOBRAMYCIN

REACTIONS (3)
  - Eosinophilia [Recovered/Resolved]
  - Bronchiolitis [Unknown]
  - Therapy cessation [Not Recovered/Not Resolved]
